FAERS Safety Report 11922654 (Version 2)
Quarter: 2016Q1

REPORT INFORMATION
  Report Type: Spontaneous
  Country: US (occurrence: US)
  Receive Date: 20160115
  Receipt Date: 20160209
  Transmission Date: 20160526
  Serious: Yes (Other)
  Sender: FDA-Public Use
  Company Number: US-CELGENEUS-USA-2016012172

PATIENT
  Age: 90 Year
  Sex: Male

DRUGS (2)
  1. REVLIMID [Suspect]
     Active Substance: LENALIDOMIDE
     Indication: PLASMA CELL MYELOMA
     Route: 048
     Dates: start: 201506
  2. REVLIMID [Suspect]
     Active Substance: LENALIDOMIDE
     Route: 048
     Dates: start: 20151007

REACTIONS (5)
  - Oedema peripheral [Unknown]
  - Cough [Unknown]
  - Crying [Unknown]
  - Dysphonia [Unknown]
  - Erythema [Unknown]

NARRATIVE: CASE EVENT DATE: 20160110
